FAERS Safety Report 6172488-X (Version None)
Quarter: 2009Q2

REPORT INFORMATION
  Report Type: 
  Country: None (occurrence: None)
  Receive Date: 20090427
  Receipt Date: 20090413
  Transmission Date: 20091009
  Serious: Yes (Other)
  Sender: FDA-Public Use
  Company Number: 2009-01473

PATIENT
  Age: 62 Year
  Sex: Male

DRUGS (3)
  1. VELCADE [Suspect]
     Indication: PLASMACYTOMA
     Dosage: 1.3 MG/M2, INTRAVENOUS
     Route: 042
  2. LONALGAL (CODEINE PHOSPHATE, PARACETAMOL) [Concomitant]
  3. MORPHINE [Concomitant]

REACTIONS (1)
  - CHOLESTASIS [None]
